FAERS Safety Report 21772074 (Version 1)
Quarter: 2022Q4

REPORT INFORMATION
  Report Type: Spontaneous
  Country: US (occurrence: US)
  Receive Date: 20221223
  Receipt Date: 20221223
  Transmission Date: 20230112
  Serious: No
  Sender: FDA-Public Use
  Company Number: US-CTI BIOPHARMA-2022US03069

PATIENT

DRUGS (27)
  1. VONJO [Suspect]
     Active Substance: PACRITINIB
     Indication: Myelofibrosis
     Dosage: 200 MG, BID
     Route: 048
     Dates: start: 20220903, end: 20220906
  2. ALLOPURINOL [Concomitant]
     Active Substance: ALLOPURINOL
  3. VITAMIN D3 [Concomitant]
     Active Substance: CHOLECALCIFEROL
  4. ELDERBERRY EXTRACT [Concomitant]
  5. ZINC [Concomitant]
     Active Substance: ZINC
  6. METFORMIN [Concomitant]
     Active Substance: METFORMIN HYDROCHLORIDE
  7. AZO [Concomitant]
     Active Substance: PHENAZOPYRIDINE HYDROCHLORIDE
  8. PRAVASTATIN [Concomitant]
     Active Substance: PRAVASTATIN
  9. IRON [Concomitant]
     Active Substance: IRON
  10. HYDRALAZINE [Concomitant]
     Active Substance: HYDRALAZINE HYDROCHLORIDE
  11. SYNTHROID [Concomitant]
     Active Substance: LEVOTHYROXINE SODIUM
  12. PANTOPRAZOLE [Concomitant]
     Active Substance: PANTOPRAZOLE
  13. BIOTIN [Concomitant]
     Active Substance: BIOTIN
  14. VITAMINS [Concomitant]
     Active Substance: VITAMINS
  15. TYLENOL [Concomitant]
     Active Substance: ACETAMINOPHEN
  16. CANNABIS SATIVA SUBSP. INDICA TOP [Concomitant]
     Active Substance: CANNABIS SATIVA SUBSP. INDICA TOP
  17. LUMIGAN [Concomitant]
     Active Substance: BIMATOPROST
  18. FUROSEMIDE [Concomitant]
     Active Substance: FUROSEMIDE
  19. ISOSORBIDE [Concomitant]
     Active Substance: ISOSORBIDE
  20. CARVEDILOL [Concomitant]
     Active Substance: CARVEDILOL
  21. LOPERAMIDE [Concomitant]
     Active Substance: LOPERAMIDE
  22. METOLAZONE [Concomitant]
     Active Substance: METOLAZONE
  23. ASPIRIN [Concomitant]
     Active Substance: ASPIRIN
  24. FLONASE [Concomitant]
     Active Substance: FLUTICASONE PROPIONATE
  25. ALLEGRA ALLERGY [Concomitant]
     Active Substance: FEXOFENADINE HYDROCHLORIDE
  26. GABAPENTIN [Concomitant]
     Active Substance: GABAPENTIN
  27. NITROFURANTOIN [Concomitant]
     Active Substance: NITROFURANTOIN

REACTIONS (5)
  - Nausea [None]
  - Decreased appetite [None]
  - Retching [None]
  - Fatigue [Unknown]
  - Headache [Unknown]
